APPROVED DRUG PRODUCT: CIMETIDINE
Active Ingredient: CIMETIDINE
Strength: 800MG
Dosage Form/Route: TABLET;ORAL
Application: A218997 | Product #004 | TE Code: AB
Applicant: AUROBINDO PHARMA LTD
Approved: Nov 12, 2024 | RLD: No | RS: No | Type: RX